FAERS Safety Report 22048784 (Version 1)
Quarter: 2023Q1

REPORT INFORMATION
  Report Type: Spontaneous
  Country: US (occurrence: US)
  Receive Date: 20230301
  Receipt Date: 20230301
  Transmission Date: 20230418
  Serious: No
  Sender: FDA-Public Use
  Company Number: US-COSETTE-CP2023US000033

PATIENT
  Sex: Female

DRUGS (1)
  1. BENICAR [Suspect]
     Active Substance: OLMESARTAN MEDOXOMIL
     Indication: Hypertension
     Route: 065

REACTIONS (5)
  - Dry mouth [Unknown]
  - Thirst [Unknown]
  - Headache [Unknown]
  - Adverse drug reaction [Unknown]
  - Drug ineffective [Unknown]
